FAERS Safety Report 17436845 (Version 2)
Quarter: 2020Q1

REPORT INFORMATION
  Report Type: Spontaneous
  Country: DE (occurrence: DE)
  Receive Date: 20200219
  Receipt Date: 20200303
  Transmission Date: 20200409
  Serious: No
  Sender: FDA-Public Use
  Company Number: DE-EMD SERONO-9145861

PATIENT
  Age: 39 Year
  Sex: Male

DRUGS (1)
  1. MAVENCLAD [Suspect]
     Active Substance: CLADRIBINE
     Indication: MULTIPLE SCLEROSIS

REACTIONS (1)
  - Multiple sclerosis relapse [Unknown]
